FAERS Safety Report 16901954 (Version 3)
Quarter: 2022Q4

REPORT INFORMATION
  Report Type: Report from Study
  Country: PR (occurrence: PR)
  Receive Date: 20191010
  Receipt Date: 20221114
  Transmission Date: 20230113
  Serious: Yes (Hospitalization, Other)
  Sender: FDA-Public Use
  Company Number: PR-ABBVIE-19K-131-2824076-00

PATIENT
  Age: 51 Year
  Sex: Female
  Weight: 55.79 kg

DRUGS (15)
  1. HUMIRA [Suspect]
     Active Substance: ADALIMUMAB
     Indication: Psoriasis
     Route: 058
     Dates: start: 20180328
  2. HUMIRA [Suspect]
     Active Substance: ADALIMUMAB
     Indication: Psoriatic arthropathy
  3. HUMIRA [Suspect]
     Active Substance: ADALIMUMAB
     Indication: Psoriasis
  4. LORAZEPAM [Concomitant]
     Active Substance: LORAZEPAM
     Indication: Anxiety
     Dosage: 1 MG IN PM
     Route: 048
     Dates: start: 2013
  5. WELLBUTRIN [Concomitant]
     Active Substance: BUPROPION HYDROCHLORIDE
     Indication: Depression
     Route: 048
     Dates: start: 2013
  6. NEURONTIN [Concomitant]
     Active Substance: GABAPENTIN
     Indication: Neuropathy peripheral
     Route: 048
     Dates: start: 2013
  7. RELAFEN [Concomitant]
     Active Substance: NABUMETONE
     Indication: Muscle spasms
     Dosage: START DATE TEXT: OVER 10 YEARS AGO
     Route: 048
  8. Albuterol (Ventolin) [Concomitant]
     Indication: Asthma
     Dosage: START DATE TEXT: 10 YEARS AGO
     Route: 055
     Dates: start: 2012
  9. PRILOSEC [Concomitant]
     Active Substance: OMEPRAZOLE MAGNESIUM
     Indication: Gastritis
     Dosage: FORM STRENGTH: 20 MILLIGRAM?START DATE TEXT: MORE THAN 5 YEARS AGO
     Route: 048
  10. PRILOSEC [Concomitant]
     Active Substance: OMEPRAZOLE MAGNESIUM
     Indication: Gastritis
     Dosage: FORM STRENGTH: 1 MILLIGRAM
  11. PRILOSEC [Concomitant]
     Active Substance: OMEPRAZOLE MAGNESIUM
     Indication: Gastritis
     Dates: start: 2014
  12. VENTOLIN [Concomitant]
     Active Substance: ALBUTEROL SULFATE
     Indication: Asthma
     Dosage: 10 YEARS AGO
     Route: 055
  13. AMPICILLIN [Concomitant]
     Active Substance: AMPICILLIN
     Indication: Product used for unknown indication
  14. ELASOMERAN [Concomitant]
     Active Substance: ELASOMERAN
     Indication: COVID-19
     Dosage: 1ST DOSE
  15. ELASOMERAN [Concomitant]
     Active Substance: ELASOMERAN
     Indication: COVID-19
     Dosage: 2ND DOSE
     Route: 030

REACTIONS (9)
  - Procedural complication [Recovering/Resolving]
  - Urinary tract obstruction [Recovering/Resolving]
  - Nephrolithiasis [Recovered/Resolved]
  - Urinary tract infection [Recovered/Resolved]
  - Pyrexia [Recovering/Resolving]
  - Renal disorder [Unknown]
  - Blood pressure increased [Recovering/Resolving]
  - Headache [Recovered/Resolved]
  - Kidney infection [Recovered/Resolved]

NARRATIVE: CASE EVENT DATE: 20190101
